FAERS Safety Report 4984148-9 (Version None)
Quarter: 2006Q2

REPORT INFORMATION
  Report Type: 
  Country: None (occurrence: None)
  Receive Date: 20060425
  Receipt Date: 20060425
  Transmission Date: 20061013
  Serious: Yes (Hospitalization)
  Sender: FDA-Public Use
  Company Number: None

PATIENT
  Age: 64 Year
  Sex: Male

DRUGS (2)
  1. ATENOLOL [Suspect]
     Dosage: 25 MG PO QD
     Route: 048
  2. LOSARTAN POTASSIUM [Suspect]
     Dosage: 100 MG PO QAM
     Route: 048

REACTIONS (4)
  - DIZZINESS [None]
  - DRUG INTERACTION [None]
  - MENTAL DISORDER [None]
  - SYNCOPE [None]
